FAERS Safety Report 9689010 (Version 1)
Quarter: 2013Q4

REPORT INFORMATION
  Report Type: Spontaneous
  Country: FR (occurrence: FR)
  Receive Date: 20131114
  Receipt Date: 20131114
  Transmission Date: 20140711
  Serious: Yes (Death, Hospitalization)
  Sender: FDA-Public Use
  Company Number: FR-PFIZER INC-2013323132

PATIENT
  Age: 86 Year
  Sex: Male

DRUGS (8)
  1. INSPRA [Suspect]
     Dosage: 1 DF, DAILY
     Route: 048
     Dates: start: 20130531, end: 201307
  2. TRIATEC [Suspect]
     Dosage: 2.5 MG, DAILY
     Route: 048
     Dates: end: 201307
  3. LASILIX [Suspect]
     Dosage: 40 MG, DAILY
     Route: 048
     Dates: end: 201307
  4. KARDEGIC [Concomitant]
     Dosage: 75 MG, 1X/DAY
     Route: 048
  5. CARDENSIEL [Concomitant]
     Dosage: 1.25 MG, 1X/DAY
     Route: 048
  6. INIPOMP [Concomitant]
     Dosage: 1 DF, 1X/DAY
     Route: 048
     Dates: end: 201307
  7. INEXIUM [Concomitant]
     Dosage: 1 DF, 1X/DAY
     Route: 048
     Dates: end: 201307
  8. INNOHEP [Concomitant]
     Dosage: UNK
     Route: 058
     Dates: start: 20130531, end: 20130702

REACTIONS (6)
  - Renal failure [Fatal]
  - General physical health deterioration [Fatal]
  - Blood creatinine increased [Fatal]
  - Blood pressure decreased [Fatal]
  - Oedema peripheral [Fatal]
  - Oliguria [Fatal]
